FAERS Safety Report 6054881-9 (Version None)
Quarter: 2009Q1

REPORT INFORMATION
  Report Type: 
  Country: None (occurrence: None)
  Receive Date: 20090128
  Receipt Date: 20090114
  Transmission Date: 20090719
  Serious: Yes (Hospitalization)
  Sender: FDA-Public Use
  Company Number: PHHY2009FR01900

PATIENT
  Sex: Male
  Weight: 14 kg

DRUGS (4)
  1. LEPONEX [Suspect]
     Dosage: UNK
     Route: 048
     Dates: start: 20080530
  2. TRILEPTAL [Suspect]
     Dosage: UNK
     Route: 048
     Dates: start: 20080530
  3. MORPHINE [Suspect]
     Dosage: UNK
     Route: 048
     Dates: start: 20080530
  4. COCAINE [Suspect]
     Dosage: UNK
     Route: 048
     Dates: start: 20080530

REACTIONS (3)
  - ACCIDENTAL EXPOSURE [None]
  - DRUG SCREEN POSITIVE [None]
  - DRUG TOXICITY [None]
